FAERS Safety Report 4515464-2 (Version None)
Quarter: 2004Q4

REPORT INFORMATION
  Report Type: 
  Country: None (occurrence: None)
  Receive Date: 20041126
  Receipt Date: 20041118
  Transmission Date: 20050328
  Serious: Yes (Hospitalization)
  Sender: FDA-Public Use
  Company Number: 2004078841

PATIENT
  Age: 75 Year
  Sex: Male

DRUGS (1)
  1. CITALOR(ATORVASTATIN) [Suspect]
     Indication: DYSLIPIDAEMIA
     Dosage: 10 MG (10 MG 1 IN 1 D ORAL)
     Route: 048
     Dates: start: 20010201

REACTIONS (3)
  - DEPRESSION POSTOPERATIVE [None]
  - GALLBLADDER DISORDER [None]
  - PANCREATITIS ACUTE [None]
